FAERS Safety Report 4993938-8 (Version None)
Quarter: 2006Q2

REPORT INFORMATION
  Report Type: 
  Country: None (occurrence: None)
  Receive Date: 20060503
  Receipt Date: 20060503
  Transmission Date: 20061013
  Serious: No
  Sender: FDA-Public Use
  Company Number: None

PATIENT
  Sex: Male

DRUGS (2)
  1. CEFTRIAXONE [Suspect]
     Indication: LIVER ABSCESS
     Dates: start: 20060218, end: 20060410
  2. CEFTRIAXONE [Suspect]

REACTIONS (1)
  - PARAESTHESIA [None]
